FAERS Safety Report 19976949 (Version 1)
Quarter: 2021Q4

REPORT INFORMATION
  Report Type: Spontaneous
  Country: US (occurrence: US)
  Receive Date: 20211020
  Receipt Date: 20211020
  Transmission Date: 20220303
  Serious: Yes (Hospitalization, Other)
  Sender: FDA-Public Use
  Company Number: US-BAYER-2021A230624

PATIENT
  Age: 34 Year
  Sex: Female

DRUGS (1)
  1. GADAVIST [Suspect]
     Active Substance: GADOBUTROL
     Dosage: UNK UNK, ONCE

REACTIONS (6)
  - Seizure [Recovering/Resolving]
  - Renal failure [Recovering/Resolving]
  - Respiratory failure [Recovering/Resolving]
  - Contrast media toxicity [Recovering/Resolving]
  - Encephalopathy [Recovering/Resolving]
  - Acute myocardial infarction [Recovering/Resolving]
